FAERS Safety Report 8587188-6 (Version None)
Quarter: 2012Q3

REPORT INFORMATION
  Report Type: 
  Country: None (occurrence: None)
  Receive Date: 20120810
  Receipt Date: 20111117
  Transmission Date: 20120928
  Serious: Yes (Hospitalization, Other)
  Sender: FDA-Public Use
  Company Number: US-ASTRAZENECA-2010SE46464

PATIENT
  Age: 66 Year
  Sex: Female

DRUGS (6)
  1. CALCIUM GLUCONATE [Concomitant]
     Route: 048
  2. HYDROCHLOROTHIAZIDE [Concomitant]
     Indication: BLOOD PRESSURE
     Route: 048
  3. FISH OIL [Concomitant]
     Route: 048
  4. ARIMIDEX [Suspect]
     Indication: BREAST CANCER
     Route: 048
     Dates: start: 20060101
  5. FOLIC ACID [Concomitant]
     Route: 048
  6. MULTI-VITAMINS [Concomitant]
     Route: 048

REACTIONS (10)
  - CONJUNCTIVITIS [None]
  - HOT FLUSH [None]
  - HERPES ZOSTER [None]
  - BREAST CANCER FEMALE [None]
  - LYMPHOEDEMA [None]
  - PAIN [None]
  - GAIT DISTURBANCE [None]
  - ARTHRALGIA [None]
  - EYE INFECTION [None]
  - WEIGHT INCREASED [None]
